FAERS Safety Report 7718001-4 (Version None)
Quarter: 2011Q3

REPORT INFORMATION
  Report Type: 
  Country: None (occurrence: None)
  Receive Date: 20110830
  Receipt Date: 20110817
  Transmission Date: 20111222
  Serious: Yes (Other)
  Sender: FDA-Public Use
  Company Number: US-CELGENEUS-163-21880-11062401

PATIENT
  Sex: Male

DRUGS (6)
  1. NOVOLIN 70/30 [Concomitant]
     Indication: DIABETES MELLITUS
     Dosage: 18 MILLIGRAM
     Route: 058
  2. SIMAVASTATIN [Concomitant]
     Dosage: 40 MILLIGRAM
     Route: 048
  3. REVLIMID [Suspect]
     Indication: MULTIPLE MYELOMA
     Dosage: 25 MILLIGRAM
     Route: 048
     Dates: start: 20110320
  4. DECADRON [Concomitant]
     Dosage: 20 MILLIGRAM
     Route: 048
     Dates: start: 20110320
  5. ALLOPURINOL [Concomitant]
     Indication: GOUT
     Dosage: 200 MILLIGRAM
     Route: 048
  6. VICODIN [Concomitant]
     Indication: GOUT
     Dosage: 1-2 TABS
     Route: 048
     Dates: start: 20110721

REACTIONS (1)
  - DIABETES MELLITUS [None]
